FAERS Safety Report 7900441-1 (Version None)
Quarter: 2011Q4

REPORT INFORMATION
  Report Type: 
  Country: None (occurrence: None)
  Receive Date: 20111108
  Receipt Date: 20111031
  Transmission Date: 20120403
  Serious: Yes (Other)
  Sender: FDA-Public Use
  Company Number: JP-JNJFOC-20111101207

PATIENT
  Age: 33 Year
  Sex: Male

DRUGS (8)
  1. HALOPERIDOL DECANOATE [Suspect]
     Route: 030
     Dates: start: 20110924, end: 20110924
  2. CLONAZEPAM [Concomitant]
     Route: 048
  3. SYMMETREL [Concomitant]
     Route: 065
  4. TASMOLIN [Concomitant]
     Route: 065
  5. HALOPERIDOL DECANOATE [Suspect]
     Indication: SCHIZOPHRENIA
     Route: 030
  6. LONASEN [Concomitant]
     Route: 048
  7. HALOPERIDOL DECANOATE [Suspect]
     Route: 030
     Dates: start: 20110528, end: 20110528
  8. HALOPERIDOL DECANOATE [Suspect]
     Route: 030
     Dates: start: 20110702, end: 20110702

REACTIONS (6)
  - EYE IRRITATION [None]
  - BLINDNESS [None]
  - VISUAL IMPAIRMENT [None]
  - FALL [None]
  - BALANCE DISORDER [None]
  - EYELID PTOSIS [None]
